FAERS Safety Report 18794745 (Version 2)
Quarter: 2021Q1

REPORT INFORMATION
  Report Type: Report from Study
  Country: ES (occurrence: ES)
  Receive Date: 20210127
  Receipt Date: 20210306
  Transmission Date: 20210419
  Serious: Yes (Other)
  Sender: FDA-Public Use
  Company Number: ES-TEVA-2021-ES-1871637

PATIENT
  Age: 29 Year
  Sex: Female

DRUGS (1)
  1. COPAXONE [Suspect]
     Active Substance: GLATIRAMER ACETATE
     Indication: MULTIPLE SCLEROSIS
     Route: 058
     Dates: start: 20190901

REACTIONS (5)
  - Throat tightness [Recovering/Resolving]
  - Asphyxia [Recovering/Resolving]
  - Erythema [Recovering/Resolving]
  - Dyspnoea [Recovered/Resolved]
  - Fear of injection [Recovering/Resolving]

NARRATIVE: CASE EVENT DATE: 202101
